FAERS Safety Report 8314591-1 (Version None)
Quarter: 2012Q2

REPORT INFORMATION
  Report Type: 
  Country: None (occurrence: None)
  Receive Date: 20120426
  Receipt Date: 20120423
  Transmission Date: 20120825
  Serious: Yes (Other)
  Sender: FDA-Public Use
  Company Number: BR-ROCHE-1062471

PATIENT
  Sex: Female
  Weight: 78 kg

DRUGS (5)
  1. WARFARIN SODIUM [Concomitant]
  2. LOSARTAN POTASSIUM [Concomitant]
  3. MABTHERA [Suspect]
     Indication: RHEUMATOID ARTHRITIS
     Route: 042
     Dates: start: 20111123, end: 20111209
  4. EPOETIN ALFA [Concomitant]
  5. DAFLON (BRAZIL) [Concomitant]

REACTIONS (2)
  - ANAEMIA [None]
  - THROMBOSIS [None]
